FAERS Safety Report 16950544 (Version 1)
Quarter: 2019Q4

REPORT INFORMATION
  Report Type: Spontaneous
  Country: US (occurrence: US)
  Receive Date: 20190831
  Receipt Date: 20190831
  Transmission Date: 20200122
  Serious: Yes (Hospitalization)
  Sender: FDA-Public Use
  Company Number: None

PATIENT
  Sex: Female
  Weight: 68.2 kg

DRUGS (9)
  1. DEXAMETHASONE. [Suspect]
     Active Substance: DEXAMETHASONE
     Dates: end: 20190306
  2. ETOPOSIDE (VP-16) [Suspect]
     Active Substance: ETOPOSIDE
     Dates: end: 20190809
  3. CYCLOPHOSPHAMIDE. [Suspect]
     Active Substance: CYCLOPHOSPHAMIDE
     Dates: end: 20190422
  4. DAUNORUBICIN [Suspect]
     Active Substance: DAUNORUBICIN
     Dates: end: 20190307
  5. CYTARABINE. [Suspect]
     Active Substance: CYTARABINE
     Dates: end: 20190809
  6. MERCAPTOPURINE. [Suspect]
     Active Substance: MERCAPTOPURINE
     Dates: end: 20190505
  7. ONCASPAR [Suspect]
     Active Substance: PEGASPARGASE
     Dates: end: 20190712
  8. METHOTREXATE. [Suspect]
     Active Substance: METHOTREXATE
     Dates: end: 20190808
  9. VINCRISTINE SULFATE. [Suspect]
     Active Substance: VINCRISTINE SULFATE
     Dates: end: 20190307

REACTIONS (5)
  - Pyrexia [None]
  - Haemoglobin decreased [None]
  - White blood cell count decreased [None]
  - Abdominal pain [None]
  - Heart rate increased [None]

NARRATIVE: CASE EVENT DATE: 20190824
